FAERS Safety Report 13550521 (Version 2)
Quarter: 2017Q2

REPORT INFORMATION
  Report Type: Spontaneous
  Country: IE (occurrence: IE)
  Receive Date: 20170516
  Receipt Date: 20170524
  Transmission Date: 20170830
  Serious: Yes (Other)
  Sender: FDA-Public Use
  Company Number: IE-PFIZER INC-2017210932

PATIENT
  Sex: Female

DRUGS (2)
  1. TRITACE [Suspect]
     Active Substance: RAMIPRIL
     Dosage: 2.5 MG, 1X/DAY
     Route: 065
  2. TRITACE [Suspect]
     Active Substance: RAMIPRIL
     Dosage: UNK
     Route: 065

REACTIONS (9)
  - Raynaud^s phenomenon [Unknown]
  - Rash [Unknown]
  - Lethargy [Not Recovered/Not Resolved]
  - Pruritus [Unknown]
  - Myalgia [Not Recovered/Not Resolved]
  - Madarosis [Recovered/Resolved]
  - Alopecia [Recovered/Resolved]
  - Upper limb fracture [Unknown]
  - Cardiac arrest [Unknown]
